FAERS Safety Report 12789121 (Version 1)
Quarter: 2016Q3

REPORT INFORMATION
  Report Type: Not Available
  Country: JP (occurrence: JP)
  Receive Date: 20160928
  Receipt Date: 20160928
  Transmission Date: 20161109
  Serious: Yes (Hospitalization)
  Sender: FDA-Public Use
  Company Number: JP-AKORN-18844

PATIENT
  Age: 65 Year
  Sex: Male

DRUGS (1)
  1. ZIOPTAN [Suspect]
     Active Substance: TAFLUPROST

REACTIONS (6)
  - Skin swelling [None]
  - Calculus urinary [Unknown]
  - Blood pressure increased [Unknown]
  - Nasopharyngitis [Recovered/Resolved]
  - Benign prostatic hyperplasia [Unknown]
  - Calculus bladder [Unknown]

NARRATIVE: CASE EVENT DATE: 20140628
